FAERS Safety Report 11414088 (Version 1)
Quarter: 2015Q3

REPORT INFORMATION
  Report Type: Other
  Country: GB (occurrence: GB)
  Receive Date: 20150824
  Receipt Date: 20150824
  Transmission Date: 20151125
  Serious: Yes (Hospitalization)
  Sender: FDA-Public Use
  Company Number: GB-MYLANLABS-2015M1027420

PATIENT

DRUGS (2)
  1. PARACETAMOL [Suspect]
     Active Substance: ACETAMINOPHEN
     Dosage: 10MG / KG
  2. IBUPROFEN. [Suspect]
     Active Substance: IBUPROFEN
     Dosage: 10MG/KG

REACTIONS (5)
  - Wheezing [Unknown]
  - Periorbital oedema [Unknown]
  - Lip swelling [Unknown]
  - Cough [Unknown]
  - Rhinitis [Unknown]

NARRATIVE: CASE EVENT DATE: 20150609
